FAERS Safety Report 9000914 (Version 1)
Quarter: 2012Q4

REPORT INFORMATION
  Report Type: Spontaneous
  Country: DE (occurrence: None)
  Receive Date: 20121226
  Receipt Date: 20121226
  Transmission Date: 20130627
  Serious: Yes (Other)
  Sender: FDA-Public Use
  Company Number: AUR-APL-2012-05464

PATIENT
  Sex: Male
  Weight: 70 kg

DRUGS (1)
  1. TERBINAFINE (TERBINAFINE) [Suspect]
     Indication: DRUG USE FOR UNKNOWN INDICATION
     Dates: start: 20120427

REACTIONS (1)
  - Oropharyngeal pain [None]
